FAERS Safety Report 9555330 (Version 1)
Quarter: 2013Q3

REPORT INFORMATION
  Report Type: Spontaneous
  Country: US (occurrence: None)
  Receive Date: 20130816
  Receipt Date: 20130816
  Transmission Date: 20140515
  Serious: No
  Sender: FDA-Public Use
  Company Number: US-011828

PATIENT
  Age: 51 Year
  Sex: Female
  Weight: 62.14 kg

DRUGS (2)
  1. PICO-SALAX (NOT SPECIFIED) [Suspect]
     Indication: BOWEL PREPARATION
     Dosage: ONE PACKET MIXED IN 5OZ OF ROOM TEMPERATURE WATER AT 17:10 ORAL?
  2. ALIGN [Concomitant]

REACTIONS (1)
  - Eructation [None]
